FAERS Safety Report 12322262 (Version 2)
Quarter: 2016Q3

REPORT INFORMATION
  Report Type: Spontaneous
  Country: BE (occurrence: BE)
  Receive Date: 20160502
  Receipt Date: 20160720
  Transmission Date: 20161109
  Serious: Yes (Other)
  Sender: FDA-Public Use
  Company Number: BE-AMGEN-BELSP2016053746

PATIENT
  Age: 54 Year
  Sex: Female
  Weight: 65 kg

DRUGS (1)
  1. PROLIA [Suspect]
     Active Substance: DENOSUMAB
     Indication: PRODUCT USED FOR UNKNOWN INDICATION
     Dosage: UNK
     Route: 065
     Dates: start: 20150801

REACTIONS (2)
  - Intervertebral disc disorder [Unknown]
  - Osteomyelitis [Not Recovered/Not Resolved]
